FAERS Safety Report 5940191-4 (Version None)
Quarter: 2008Q4

REPORT INFORMATION
  Report Type: 
  Country: None (occurrence: None)
  Receive Date: 20081031
  Receipt Date: 20081031
  Transmission Date: 20090506
  Serious: Yes (Hospitalization)
  Sender: FDA-Public Use
  Company Number: None

PATIENT
  Age: 56 Year
  Sex: Male
  Weight: 84.8 kg

DRUGS (1)
  1. VANCOMYCIN [Suspect]
     Indication: PNEUMONIA
     Dosage: 1000 MG BID IV
     Route: 048
     Dates: start: 20081009, end: 20081009

REACTIONS (5)
  - CONFUSIONAL STATE [None]
  - CONVULSION [None]
  - NAUSEA [None]
  - SPEECH DISORDER [None]
  - VOMITING [None]
